FAERS Safety Report 5808090-6 (Version None)
Quarter: 2008Q3

REPORT INFORMATION
  Report Type: 
  Country: None (occurrence: None)
  Receive Date: 20080711
  Receipt Date: 20080701
  Transmission Date: 20090109
  Serious: Yes (Hospitalization, Other)
  Sender: FDA-Public Use
  Company Number: US-PFIZER INC-2008055512

PATIENT
  Sex: Female
  Weight: 69.4 kg

DRUGS (2)
  1. ZOLOFT [Suspect]
     Indication: PREMENSTRUAL SYNDROME
     Route: 048
  2. SYNTHROID [Concomitant]
     Indication: THYROID DISORDER
     Route: 048

REACTIONS (4)
  - DYSGRAPHIA [None]
  - HYSTERECTOMY [None]
  - INSOMNIA [None]
  - TREMOR [None]
